FAERS Safety Report 6013801-3 (Version None)
Quarter: 2008Q4

REPORT INFORMATION
  Report Type: 
  Country: None (occurrence: None)
  Receive Date: 20081219
  Receipt Date: 20081208
  Transmission Date: 20090506
  Serious: Yes (Hospitalization, Other)
  Sender: FDA-Public Use
  Company Number: GB-PFIZER INC-2008094867

PATIENT

DRUGS (5)
  1. LYRICA [Suspect]
     Indication: SCIATICA
     Dosage: 25 MG, 1X/DAY
     Route: 048
     Dates: start: 20080726, end: 20080726
  2. LYRICA [Interacting]
     Indication: BACK PAIN
  3. LYRICA [Interacting]
     Indication: SPINAL COLUMN STENOSIS
  4. LYRICA [Interacting]
     Indication: RADICULAR PAIN
  5. TRAMADOL HYDROCHLORIDE [Interacting]
     Dosage: 50 MG, 3X/DAY

REACTIONS (2)
  - DRUG INTERACTION [None]
  - SYNCOPE [None]
